FAERS Safety Report 8525713-1 (Version None)
Quarter: 2012Q3

REPORT INFORMATION
  Report Type: 
  Country: None (occurrence: None)
  Receive Date: 20120720
  Receipt Date: 20120709
  Transmission Date: 20120928
  Serious: Yes (Hospitalization, Other)
  Sender: FDA-Public Use
  Company Number: US-009507513-1110USA00792

PATIENT

DRUGS (2)
  1. FOSAMAX [Suspect]
     Indication: OSTEOPOROSIS
     Dosage: 70 MG, QW
     Route: 048
     Dates: start: 20010701, end: 20100201
  2. FOSAMAX PLUS D [Suspect]
     Indication: OSTEOPOROSIS
     Dosage: 70 MG, UNK
     Route: 048
     Dates: start: 20051010

REACTIONS (37)
  - RENAL FAILURE CHRONIC [None]
  - COMPRESSION FRACTURE [None]
  - NAUSEA [None]
  - CARDIAC FAILURE [None]
  - ARTHRITIS [None]
  - OSTEOARTHRITIS [None]
  - BLOOD CALCIUM DECREASED [None]
  - BREAST CANCER [None]
  - FRACTURE DELAYED UNION [None]
  - INTERVERTEBRAL DISC DEGENERATION [None]
  - SPINAL FRACTURE [None]
  - HYPERKALAEMIA [None]
  - FALL [None]
  - ROTATOR CUFF SYNDROME [None]
  - ANAEMIA POSTOPERATIVE [None]
  - BACK DISORDER [None]
  - ANKLE FRACTURE [None]
  - ATRIAL FIBRILLATION [None]
  - CEREBROVASCULAR ACCIDENT [None]
  - INTRANEURAL CYST [None]
  - DEVICE FAILURE [None]
  - HYPOTHYROIDISM [None]
  - BONE DISORDER [None]
  - VITAMIN D DEFICIENCY [None]
  - CARDIAC DISORDER [None]
  - SPINAL COLUMN STENOSIS [None]
  - HYPERCHOLESTEROLAEMIA [None]
  - TENDONITIS [None]
  - KYPHOSIS [None]
  - DIZZINESS [None]
  - FEMUR FRACTURE [None]
  - TIBIA FRACTURE [None]
  - GALLBLADDER DISORDER [None]
  - HAND FRACTURE [None]
  - BENIGN BREAST NEOPLASM [None]
  - OSTEOPOROSIS [None]
  - HYPOCALCIURIA [None]
